FAERS Safety Report 21705878 (Version 1)
Quarter: 2022Q4

REPORT INFORMATION
  Report Type: Spontaneous
  Country: GB (occurrence: IT)
  Receive Date: 20221209
  Receipt Date: 20221209
  Transmission Date: 20230113
  Serious: Yes (Hospitalization, Other)
  Sender: FDA-Public Use
  Company Number: None

PATIENT

DRUGS (1)
  1. LATUDA [Suspect]
     Active Substance: LURASIDONE HYDROCHLORIDE
     Indication: Product used for unknown indication
     Dosage: 74MG ( DOSE WAS INCREASED, NORMALLY ADMINISTERED LATUDA 37MG)
     Route: 048
     Dates: start: 20220913, end: 20220913

REACTIONS (4)
  - Hyperhidrosis [Recovering/Resolving]
  - Musculoskeletal stiffness [Recovering/Resolving]
  - Dyskinesia [Recovering/Resolving]
  - Product prescribing error [Recovering/Resolving]

NARRATIVE: CASE EVENT DATE: 20220913
